FAERS Safety Report 20704885 (Version 1)
Quarter: 2022Q2

REPORT INFORMATION
  Report Type: Spontaneous
  Country: US (occurrence: None)
  Receive Date: 20220412
  Receipt Date: 20220412
  Transmission Date: 20220720
  Serious: Yes (Disabling)
  Sender: FDA-Public Use
  Company Number: None

PATIENT
  Age: 38 Year
  Sex: Female
  Weight: 45.9 kg

DRUGS (10)
  1. CYCLOBENZAPRINE HYDROCHLORIDE [Suspect]
     Active Substance: CYCLOBENZAPRINE HYDROCHLORIDE
     Indication: Parkinsonism
     Dates: start: 20180401, end: 20181002
  2. LITHIUM [Concomitant]
     Active Substance: LITHIUM
  3. LAMICTAL [Concomitant]
     Active Substance: LAMOTRIGINE
  4. KLONOPIN [Concomitant]
     Active Substance: CLONAZEPAM
  5. BACLOFEN [Concomitant]
     Active Substance: BACLOFEN
  6. PREDNISONE [Concomitant]
     Active Substance: PREDNISONE
  7. AMBIEN [Concomitant]
     Active Substance: ZOLPIDEM TARTRATE
  8. TYLENOL [Concomitant]
     Active Substance: ACETAMINOPHEN
  9. ADVIL [Concomitant]
     Active Substance: IBUPROFEN
  10. NAPROXEN [Concomitant]
     Active Substance: NAPROXEN

REACTIONS (1)
  - Sedation complication [None]

NARRATIVE: CASE EVENT DATE: 20180401
